APPROVED DRUG PRODUCT: FOSRENOL
Active Ingredient: LANTHANUM CARBONATE
Strength: EQ 1GM BASE
Dosage Form/Route: POWDER;ORAL
Application: N204734 | Product #002
Applicant: TAKEDA PHARMACEUTICALS USA INC
Approved: Sep 24, 2014 | RLD: Yes | RS: Yes | Type: RX

PATENTS:
Patent 8980327 | Expires: Dec 1, 2030
Patent 9023397 | Expires: Dec 1, 2030